FAERS Safety Report 9188340 (Version 1)
Quarter: 2013Q1

REPORT INFORMATION
  Report Type: Spontaneous
  Country: BR (occurrence: BR)
  Receive Date: 20130325
  Receipt Date: 20130325
  Transmission Date: 20140127
  Serious: Yes (Hospitalization)
  Sender: FDA-Public Use
  Company Number: BR-PFIZER INC-2013092651

PATIENT
  Sex: Female

DRUGS (5)
  1. CELEBRA [Suspect]
     Indication: PAIN IN EXTREMITY
     Dosage: TWO CAPSULE OF 200MG DAILY
     Route: 048
     Dates: start: 20130307, end: 20130316
  2. ATENOLOL [Concomitant]
  3. SOTALOL [Concomitant]
  4. PURAN T4 [Concomitant]
  5. OMEPRAZOLE [Concomitant]

REACTIONS (5)
  - Hypersensitivity [Not Recovered/Not Resolved]
  - Erythema [Not Recovered/Not Resolved]
  - Pruritus generalised [Recovering/Resolving]
  - Swelling face [Unknown]
  - Inflammation [Not Recovered/Not Resolved]
